FAERS Safety Report 25415933 (Version 1)
Quarter: 2025Q2

REPORT INFORMATION
  Report Type: Spontaneous
  Country: DE (occurrence: DE)
  Receive Date: 20250610
  Receipt Date: 20250610
  Transmission Date: 20250716
  Serious: Yes (Life-Threatening, Hospitalization, Other)
  Sender: AMGEN
  Company Number: DE-CUBIST PHARMACEUTICALS, INC.-2008S1000037

PATIENT
  Age: 52 Year
  Sex: Male
  Weight: 80 kg

DRUGS (20)
  1. FILGRASTIM [Suspect]
     Active Substance: FILGRASTIM
     Indication: Granulocyte count decreased
     Dosage: UNK UNK, QD
     Route: 065
     Dates: start: 20071231, end: 20080101
  2. CUBICIN [Suspect]
     Active Substance: DAPTOMYCIN
     Indication: Endocarditis staphylococcal
     Dosage: DOSE DESCRIPTION : 350 MG, QD DAILY DOSE : 350 MILLIGRAM
     Route: 040
     Dates: start: 20071219, end: 20071229
  3. CUBICIN [Suspect]
     Active Substance: DAPTOMYCIN
     Route: 040
     Dates: start: 20071219, end: 20071229
  4. MARCUMAR [Concomitant]
     Active Substance: PHENPROCOUMON
     Dosage: UNK UNK, QD
     Dates: start: 20071205
  5. MARCUMAR [Concomitant]
     Active Substance: PHENPROCOUMON
     Dates: start: 20070905
  6. POTASSIUM [Concomitant]
     Active Substance: POTASSIUM
     Dosage: UNK UNK, QD
  7. OXAZEPAM [Concomitant]
     Active Substance: OXAZEPAM
     Dosage: UNK UNK, QD
  8. GENTAMICIN [Concomitant]
     Active Substance: GENTAMICIN
     Dosage: UNK UNK, QD
     Dates: start: 20071204, end: 20071227
  9. AMPICILLIN [Concomitant]
     Active Substance: AMPICILLIN
     Dosage: UNK UNK, QD
  10. PIRETANIDE [Concomitant]
     Active Substance: PIRETANIDE
  11. HYDROCORTISONE [Concomitant]
     Active Substance: HYDROCORTISONE
     Dosage: UNK UNK, QD
  12. METAMIZOLE SODIUM [Concomitant]
     Active Substance: METAMIZOLE SODIUM
     Dates: end: 20071217
  13. CEFTRIAXONE SODIUM [Concomitant]
     Active Substance: CEFTRIAXONE SODIUM
     Dosage: UNK UNK, QD
  14. FLUCLOXACILLIN [Concomitant]
     Active Substance: FLUCLOXACILLIN
     Dosage: UNK UNK, QD
  15. INSULIN NOS [Concomitant]
     Active Substance: INSULIN NOS
     Dates: end: 20071223
  16. TRAMADOL [Concomitant]
     Active Substance: TRAMADOL
     Dosage: UNK UNK, QD
     Dates: start: 20071218, end: 20071218
  17. VANCOMYCIN [Concomitant]
     Active Substance: VANCOMYCIN
     Dosage: UNK UNK, QD
     Dates: end: 20071218
  18. RIFAMPIN [Concomitant]
     Active Substance: RIFAMPIN
     Dosage: UNK UNK, QD
     Dates: end: 20071218
  19. CLEMASTINE [Concomitant]
     Active Substance: CLEMASTINE
     Dosage: UNK UNK, QD
  20. PANTOPRAZOLE [Concomitant]
     Active Substance: PANTOPRAZOLE
     Dosage: UNK UNK, QD

REACTIONS (3)
  - Agranulocytosis [Recovered/Resolved]
  - Granulocyte count increased [Recovered/Resolved]
  - White blood cell count increased [Recovered/Resolved]

NARRATIVE: CASE EVENT DATE: 20071229
